FAERS Safety Report 5873698-9 (Version None)
Quarter: 2008Q3

REPORT INFORMATION
  Report Type: 
  Country: None (occurrence: None)
  Receive Date: 20080908
  Receipt Date: 20080904
  Transmission Date: 20090109
  Serious: Yes (Other)
  Sender: FDA-Public Use
  Company Number: B0535589A

PATIENT
  Age: 21 Year
  Sex: Male

DRUGS (2)
  1. PAXIL [Suspect]
     Indication: DRUG USE FOR UNKNOWN INDICATION
     Dosage: 20MG PER DAY
     Route: 048
     Dates: start: 20080729, end: 20080831
  2. UNKNOWN DRUG [Suspect]
     Indication: MENIERE'S DISEASE
     Dosage: 2MG THREE TIMES PER DAY
     Route: 065
     Dates: start: 20080829, end: 20080831

REACTIONS (7)
  - DRUG INTERACTION [None]
  - EXTRAPYRAMIDAL DISORDER [None]
  - MUSCLE RIGIDITY [None]
  - OROPHARYNGEAL PAIN [None]
  - PAIN IN JAW [None]
  - PYREXIA [None]
  - TREMOR [None]
